FAERS Safety Report 5804003-1 (Version None)
Quarter: 2008Q3

REPORT INFORMATION
  Report Type: 
  Country: None (occurrence: None)
  Receive Date: 20080703
  Receipt Date: 20080625
  Transmission Date: 20090109
  Serious: Yes (Hospitalization)
  Sender: FDA-Public Use
  Company Number: 2008BI014363

PATIENT
  Age: 29 Year
  Sex: Female

DRUGS (1)
  1. TYSABRI [Suspect]
     Indication: MULTIPLE SCLEROSIS
     Dosage: 300 MG; QM; IV
     Route: 042
     Dates: start: 20071205

REACTIONS (5)
  - HEADACHE [None]
  - MULTIPLE SCLEROSIS [None]
  - NECK PAIN [None]
  - OPTIC NERVE DISORDER [None]
  - SPINAL CORD DISORDER [None]
